FAERS Safety Report 14539725 (Version 1)
Quarter: 2018Q1

REPORT INFORMATION
  Report Type: Spontaneous
  Country: US (occurrence: US)
  Receive Date: 20180215
  Receipt Date: 20180215
  Transmission Date: 20180509
  Serious: Yes (Other)
  Sender: FDA-Public Use
  Company Number: None

PATIENT
  Age: 35 Year
  Sex: Female
  Weight: 54 kg

DRUGS (7)
  1. PANTOPRAZOLE [Concomitant]
     Active Substance: PANTOPRAZOLE
  2. NORETHINDRONE. [Concomitant]
     Active Substance: NORETHINDRONE
  3. VITAMIN D [Concomitant]
     Active Substance: CHOLECALCIFEROL
  4. MAGNESIUM [Concomitant]
     Active Substance: MAGNESIUM
  5. LAMOTRIGINE 25 MG TABLET CADISTA PHARMAC [Suspect]
     Active Substance: LAMOTRIGINE
     Indication: BORDERLINE PERSONALITY DISORDER
     Dosage: ?          QUANTITY:1 TABLET(S);?CAN GET IF NEEDED
     Route: 048
     Dates: start: 20180127, end: 20180210
  6. FISH OIL [Concomitant]
     Active Substance: FISH OIL
  7. TRAMADOL. [Concomitant]
     Active Substance: TRAMADOL

REACTIONS (11)
  - Nausea [None]
  - Malaise [None]
  - Hyperhidrosis [None]
  - Vomiting [None]
  - Headache [None]
  - Dizziness [None]
  - Meningitis aseptic [None]
  - Confusional state [None]
  - Hot flush [None]
  - Influenza [None]
  - Somnolence [None]

NARRATIVE: CASE EVENT DATE: 20180210
